FAERS Safety Report 9951098 (Version 2)
Quarter: 2014Q1

REPORT INFORMATION
  Report Type: Spontaneous
  Country: US (occurrence: US)
  Receive Date: 20140304
  Receipt Date: 20140312
  Transmission Date: 20141002
  Serious: No
  Sender: FDA-Public Use
  Company Number: US-PFIZER INC-2014059218

PATIENT
  Age: 71 Year
  Sex: Female
  Weight: 64.4 kg

DRUGS (8)
  1. LEVOTHYROXINE SODIUM [Suspect]
     Indication: THYROID DISORDER
     Dosage: UNK
  2. LEVOTHYROXINE SODIUM [Suspect]
     Dosage: 50 MG, UNK
  3. LEVOTHYROXINE SODIUM [Suspect]
     Dosage: 75 MG, UNK
  4. LEVOTHYROXINE SODIUM [Suspect]
     Dosage: 88 MG, UNK
  5. ARMOUR THYROID [Suspect]
     Indication: THYROID DISORDER
     Dosage: UNK
  6. ARMOUR THYROID [Suspect]
     Dosage: UNK
  7. SYNTHROID [Suspect]
     Indication: THYROID DISORDER
     Dosage: UNK
  8. SYNTHROID [Suspect]
     Dosage: UNK

REACTIONS (9)
  - Insomnia [Not Recovered/Not Resolved]
  - Anxiety [Not Recovered/Not Resolved]
  - Feeling jittery [Not Recovered/Not Resolved]
  - Middle insomnia [Not Recovered/Not Resolved]
  - Myalgia [Not Recovered/Not Resolved]
  - Muscular weakness [Not Recovered/Not Resolved]
  - Headache [Not Recovered/Not Resolved]
  - Blood thyroid stimulating hormone increased [Unknown]
  - Abdominal pain upper [Not Recovered/Not Resolved]
